FAERS Safety Report 23336540 (Version 2)
Quarter: 2023Q4

REPORT INFORMATION
  Report Type: Other
  Country: IL (occurrence: IL)
  Receive Date: 20231226
  Receipt Date: 20231229
  Transmission Date: 20240110
  Serious: Yes (Death, Life-Threatening, Hospitalization, Other)
  Sender: FDA-Public Use
  Company Number: IL-CELLTRION INC.-2023IL021892

PATIENT

DRUGS (2)
  1. INFLIXIMAB [Suspect]
     Active Substance: INFLIXIMAB
     Indication: Colitis ulcerative
     Dosage: 120 MG, Q2WEEKS (2 INJECTIONS)
     Route: 058
     Dates: start: 20231122
  2. INFLIXIMAB [Suspect]
     Active Substance: INFLIXIMAB
     Dosage: 120 MG, Q2WEEKS (2 INJECTIONS)
     Route: 058

REACTIONS (4)
  - Death [Fatal]
  - Condition aggravated [Unknown]
  - Fall [Unknown]
  - Elderly [Unknown]

NARRATIVE: CASE EVENT DATE: 20231120
